FAERS Safety Report 6310727-2 (Version None)
Quarter: 2009Q3

REPORT INFORMATION
  Report Type: 
  Country: None (occurrence: None)
  Receive Date: 20090814
  Receipt Date: 20090730
  Transmission Date: 20100115
  Serious: Yes (Life-Threatening, Hospitalization)
  Sender: FDA-Public Use
  Company Number: DE-GENENTECH-288632

PATIENT
  Sex: Female

DRUGS (13)
  1. RITUXIMAB [Suspect]
     Indication: NON-HODGKIN'S LYMPHOMA
     Dosage: 712 MG, UNK
     Route: 042
     Dates: start: 20080526, end: 20081017
  2. MITOXANTRONE [Suspect]
     Indication: NON-HODGKIN'S LYMPHOMA
     Dosage: 13 MG, QD
     Route: 042
     Dates: start: 20080526, end: 20081017
  3. CHLORAMBUCIL [Suspect]
     Indication: NON-HODGKIN'S LYMPHOMA
     Dosage: 18 MG, UNK
     Route: 048
     Dates: start: 20080526, end: 20081017
  4. PREDNISONE [Suspect]
     Indication: NON-HODGKIN'S LYMPHOMA
     Dosage: 50 MG, UNK
     Route: 048
     Dates: start: 20080526, end: 20081017
  5. NEXIUM [Concomitant]
     Indication: DRUG USE FOR UNKNOWN INDICATION
     Dosage: UNK
  6. GABAPENTIN [Concomitant]
     Indication: DRUG USE FOR UNKNOWN INDICATION
     Dosage: UNK
  7. COTRIM [Concomitant]
     Indication: DRUG USE FOR UNKNOWN INDICATION
     Dosage: UNK
  8. LANTUS [Concomitant]
     Indication: DRUG USE FOR UNKNOWN INDICATION
     Dosage: UNK
  9. ESIDRIX [Concomitant]
     Indication: DRUG USE FOR UNKNOWN INDICATION
     Dosage: UNK
  10. TEGRETOL [Concomitant]
     Indication: DRUG USE FOR UNKNOWN INDICATION
     Dosage: UNK
  11. ACTRAPID [Concomitant]
     Indication: DRUG USE FOR UNKNOWN INDICATION
     Dosage: UNK
  12. DELIX [Concomitant]
     Indication: DRUG USE FOR UNKNOWN INDICATION
     Dosage: UNK
  13. ZYLORIC [Concomitant]
     Indication: DRUG USE FOR UNKNOWN INDICATION
     Dosage: UNK

REACTIONS (4)
  - DEHYDRATION [None]
  - GENERAL PHYSICAL HEALTH DETERIORATION [None]
  - POLYNEUROPATHY [None]
  - PULMONARY EMBOLISM [None]
